FAERS Safety Report 5971526-4 (Version None)
Quarter: 2008Q4

REPORT INFORMATION
  Report Type: 
  Country: None (occurrence: None)
  Receive Date: 20081201
  Receipt Date: 20081015
  Transmission Date: 20090506
  Serious: No
  Sender: FDA-Public Use
  Company Number: US-AMGEN-KDL304709

PATIENT
  Sex: Female

DRUGS (3)
  1. ENBREL [Suspect]
     Indication: PSORIASIS
     Route: 058
     Dates: start: 20080327, end: 20080701
  2. MULTI-VITAMINS [Concomitant]
  3. BETAMETHASONE DIPROPIONATE [Concomitant]

REACTIONS (1)
  - HERPES ZOSTER [None]
